FAERS Safety Report 17066877 (Version 5)
Quarter: 2020Q1

REPORT INFORMATION
  Report Type: Spontaneous
  Country: US (occurrence: US)
  Receive Date: 20191122
  Receipt Date: 20200219
  Transmission Date: 20200409
  Serious: Yes (Other)
  Sender: FDA-Public Use
  Company Number: US-PFIZER INC-2018408777

PATIENT
  Age: 77 Year
  Sex: Female
  Weight: 95.25 kg

DRUGS (2)
  1. ARTHROTEC [Suspect]
     Active Substance: DICLOFENAC SODIUM\MISOPROSTOL
     Indication: COSTOCHONDRITIS
     Dosage: UNK, 2X/DAY (1 TABLET IS 50 MG DICLOFENAC SODIUM, 200 MCG MISOPROSTOL)
     Route: 048
     Dates: start: 2016
  2. ARTHROTEC [Suspect]
     Active Substance: DICLOFENAC SODIUM\MISOPROSTOL
     Dosage: 2 TABLETS, DAILY [I THINK IT^S 50 MG PER PILL AND IT^S 2 PILLS A DAY]

REACTIONS (8)
  - Heart rate irregular [Unknown]
  - Dyspnoea [Unknown]
  - Off label use [Unknown]
  - Seizure [Unknown]
  - Depressed mood [Unknown]
  - Product use in unapproved indication [Unknown]
  - Movement disorder [Unknown]
  - Amnesia [Unknown]

NARRATIVE: CASE EVENT DATE: 201909
